FAERS Safety Report 12913519 (Version 1)
Quarter: 2016Q4

REPORT INFORMATION
  Report Type: Spontaneous
  Country: GR (occurrence: GR)
  Receive Date: 20161104
  Receipt Date: 20161104
  Transmission Date: 20170207
  Serious: Yes (Other)
  Sender: FDA-Public Use
  Company Number: GR-PRINSTON PHARMACEUTICAL INC.-2016PRN00298

PATIENT
  Sex: Female
  Weight: 1.61 kg

DRUGS (1)
  1. VALSARTAN AND HYDROCHLOROTHIAZIDE [Suspect]
     Active Substance: HYDROCHLOROTHIAZIDE\VALSARTAN
     Indication: HYPERTENSION
     Route: 064

REACTIONS (4)
  - Foetal growth restriction [Recovered/Resolved]
  - Renal impairment neonatal [Recovered/Resolved]
  - Oligohydramnios [Recovered/Resolved]
  - Foetal exposure during pregnancy [Recovered/Resolved]
